FAERS Safety Report 13334345 (Version 4)
Quarter: 2017Q3

REPORT INFORMATION
  Report Type: Spontaneous
  Country: KR (occurrence: KR)
  Receive Date: 20170314
  Receipt Date: 20170822
  Transmission Date: 20171127
  Serious: Yes (Death, Other)
  Sender: FDA-Public Use
  Company Number: KR-009507513-1703KOR005602

PATIENT
  Age: 50 Year
  Sex: Female
  Weight: 57.6 kg

DRUGS (29)
  1. CISPLAN [Concomitant]
     Active Substance: CISPLATIN
     Indication: BREAST CANCER
     Dosage: 26 MG, QD (CYCLE 3), STRENGTH: 50 MG/100 ML
     Route: 042
     Dates: start: 20161107, end: 20161113
  2. LASTET [Concomitant]
     Active Substance: ETOPOSIDE
     Indication: BREAST CANCER
     Dosage: 96 MG, QD (CYCLE 3), STRENGTH: 100 MG/5 ML
     Route: 042
     Dates: start: 20161107, end: 20161113
  3. NASERON [Concomitant]
     Dosage: 0.3 MG, ONCE
     Route: 042
     Dates: start: 20170109, end: 20170109
  4. DENOGAN [Concomitant]
     Active Substance: PROPACETAMOL HYDROCHLORIDE
     Indication: FEBRILE NEUTROPENIA
     Dosage: 1 G, QD
     Route: 042
     Dates: start: 201610
  5. EMEND (FOSAPREPITANT DIMEGLUMINE) [Suspect]
     Active Substance: FOSAPREPITANT DIMEGLUMINE
     Dosage: 150 MG, ONCE
     Route: 042
     Dates: start: 20161205, end: 20161205
  6. EMEND (FOSAPREPITANT DIMEGLUMINE) [Suspect]
     Active Substance: FOSAPREPITANT DIMEGLUMINE
     Dosage: 150 MG, ONCE
     Route: 042
     Dates: start: 20170109, end: 20170109
  7. DEXAMETHASONE SODIUM PHOSPHATE. [Concomitant]
     Active Substance: DEXAMETHASONE SODIUM PHOSPHATE
     Dosage: 12 MG, ONCE (STRENGTH: 5 MG/ML)
     Route: 042
     Dates: start: 20161205, end: 20161205
  8. MAGO [Concomitant]
     Indication: CONSTIPATION
     Dosage: 2 CAPSULES, TID
     Route: 048
     Dates: start: 201610
  9. DUROGESIC [Concomitant]
     Active Substance: FENTANYL
     Indication: PAIN
     Dosage: 1 PK, QD (STRENGTH: 75MCG/ 31.5 M2)
     Route: 003
     Dates: start: 201610, end: 20170107
  10. HOLOXAN [Concomitant]
     Active Substance: IFOSFAMIDE
     Dosage: 1368 MG, QD (CYCLE 4)
     Route: 042
     Dates: start: 20161205, end: 20161208
  11. DEXAMETHASONE SODIUM PHOSPHATE. [Concomitant]
     Active Substance: DEXAMETHASONE SODIUM PHOSPHATE
     Dosage: 12 MG, ONCE (STRENGTH: 5MG/ML)
     Route: 042
     Dates: start: 20170109, end: 20170109
  12. DEXAMETHASONE SODIUM PHOSPHATE. [Concomitant]
     Active Substance: DEXAMETHASONE SODIUM PHOSPHATE
     Dosage: 8 MG, QD (STRENGTH: 5 MG/ML)
     Route: 042
     Dates: start: 20170110, end: 20170111
  13. DEXAMETHASONE SODIUM PHOSPHATE. [Concomitant]
     Active Substance: DEXAMETHASONE SODIUM PHOSPHATE
     Dosage: 8 MG, QD (STRENGTH: 5 MG/ML)
     Route: 042
     Dates: start: 20161206, end: 20161207
  14. HOLOXAN [Concomitant]
     Active Substance: IFOSFAMIDE
     Indication: BREAST CANCER
     Dosage: 1540 MG, QD (CYCLE 3)
     Route: 042
     Dates: start: 20161107, end: 20161113
  15. NASERON [Concomitant]
     Indication: PREMEDICATION
     Dosage: 0.3 MG, ONCE
     Route: 042
     Dates: start: 20161107, end: 20161107
  16. FENTORA [Concomitant]
     Active Substance: FENTANYL CITRATE
     Indication: PAIN
     Dosage: 1 TABLET, QD
     Route: 048
     Dates: start: 201610
  17. ZYLORIC [Concomitant]
     Active Substance: ALLOPURINOL
     Indication: BLOOD URIC ACID INCREASED
     Dosage: 1 TABLET, BID
     Route: 048
     Dates: start: 20161111, end: 20161113
  18. LASTET [Concomitant]
     Active Substance: ETOPOSIDE
     Dosage: 85.5 MG, QD (CYCLE 4), STRENGTH: 100 MG/5 ML
     Route: 042
     Dates: start: 20161205, end: 20161208
  19. DEXAMETHASONE SODIUM PHOSPHATE. [Concomitant]
     Active Substance: DEXAMETHASONE SODIUM PHOSPHATE
     Indication: PREMEDICATION
     Dosage: 12 MG, ONCE (STRENGTH: 5 MG/ML)
     Route: 042
     Dates: start: 20161107, end: 20161107
  20. TANTUM [Concomitant]
     Active Substance: BENZYDAMINE HYDROCHLORIDE
     Indication: PROPHYLAXIS
     Dosage: 1 BTL, QD (ROUTE OF ADMINISTRATION: GARGLE)
     Dates: start: 201610
  21. CRAVIT [Concomitant]
     Active Substance: LEVOFLOXACIN
     Indication: FEBRILE NEUTROPENIA
     Dosage: 750 MG, QD (STRENGTH: 750 MG/150 ML)
     Route: 042
     Dates: start: 20161106, end: 20161112
  22. APETROL (MEGESTROL ACETATE) [Concomitant]
     Indication: DECREASED APPETITE
     Dosage: 1 PK, QD (STRENGTH: 40 MG/ML)
     Route: 048
     Dates: start: 20161109
  23. DUPHALAC [Concomitant]
     Active Substance: LACTULOSE
     Indication: CONSTIPATION
     Dosage: 2 PK, QD
     Route: 048
     Dates: start: 201606, end: 20170123
  24. DEXAMETHASONE SODIUM PHOSPHATE. [Concomitant]
     Active Substance: DEXAMETHASONE SODIUM PHOSPHATE
     Dosage: 8 MG, QD (STRENGTH: 5 MG/ML)
     Route: 042
     Dates: start: 20161108, end: 20161109
  25. NASERON [Concomitant]
     Dosage: 0.3 MG, ONCE
     Route: 042
     Dates: start: 20161205, end: 20161205
  26. CEFEPIME HYDROCHLORIDE. [Concomitant]
     Active Substance: CEFEPIME HYDROCHLORIDE
     Indication: FEBRILE NEUTROPENIA
     Dosage: 2 G, TID
     Route: 042
     Dates: start: 20161115
  27. EMEND (FOSAPREPITANT DIMEGLUMINE) [Suspect]
     Active Substance: FOSAPREPITANT DIMEGLUMINE
     Indication: PROPHYLAXIS OF NAUSEA AND VOMITING
     Dosage: 150 MG, ONCE
     Route: 042
     Dates: start: 20161107, end: 20161107
  28. CISPLAN [Concomitant]
     Active Substance: CISPLATIN
     Dosage: 22.8 MG, QD (CYCLE 4), STRENGTH: 50 MG/100 ML
     Route: 042
     Dates: start: 20161205, end: 20161208
  29. SYLCON [Concomitant]
     Indication: CONSTIPATION
     Dosage: 1 TABLET, TID
     Route: 048
     Dates: start: 201610

REACTIONS (2)
  - Neutrophil count decreased [Not Recovered/Not Resolved]
  - Dyspnoea [Fatal]

NARRATIVE: CASE EVENT DATE: 20161116
